FAERS Safety Report 8482491-2 (Version None)
Quarter: 2012Q3

REPORT INFORMATION
  Report Type: 
  Country: None (occurrence: None)
  Receive Date: 20120702
  Receipt Date: 20120613
  Transmission Date: 20120928
  Serious: Yes (Other)
  Sender: FDA-Public Use
  Company Number: CHPA2012CA013018

PATIENT
  Age: 64 Year
  Sex: Female

DRUGS (1)
  1. OTRIVIN [Suspect]
     Indication: SINUS DISORDER
     Dosage: UNK, AT LEAST 4 TIMES DAILY
     Route: 045

REACTIONS (10)
  - ACCIDENT [None]
  - HERPES ZOSTER [None]
  - FOOT FRACTURE [None]
  - OSTEOARTHRITIS [None]
  - INAPPROPRIATE SCHEDULE OF DRUG ADMINISTRATION [None]
  - HEAD INJURY [None]
  - WRONG TECHNIQUE IN DRUG USAGE PROCESS [None]
  - FALL [None]
  - MUSCULOSKELETAL PAIN [None]
  - INCORRECT DRUG ADMINISTRATION DURATION [None]
